FAERS Safety Report 24216351 (Version 1)
Quarter: 2024Q3

REPORT INFORMATION
  Report Type: Spontaneous
  Country: US (occurrence: US)
  Receive Date: 20240816
  Receipt Date: 20240816
  Transmission Date: 20241016
  Serious: No
  Sender: IPSEN
  Company Number: US-IPSEN Group, Research and Development-2024-15690

PATIENT
  Age: 38 Year
  Sex: Male

DRUGS (1)
  1. DYSPORT [Suspect]
     Active Substance: ABOBOTULINUMTOXINA
     Indication: Product used for unknown indication
     Route: 030

REACTIONS (1)
  - Anal fissure [Unknown]
